APPROVED DRUG PRODUCT: TRIAMTERENE AND HYDROCHLOROTHIAZIDE
Active Ingredient: HYDROCHLOROTHIAZIDE; TRIAMTERENE
Strength: 25MG;37.5MG
Dosage Form/Route: TABLET;ORAL
Application: A073281 | Product #001 | TE Code: AB
Applicant: SANDOZ INC
Approved: Apr 30, 1992 | RLD: No | RS: No | Type: RX